FAERS Safety Report 14608430 (Version 1)
Quarter: 2018Q1

REPORT INFORMATION
  Report Type: Spontaneous
  Country: IT (occurrence: IT)
  Receive Date: 20180307
  Receipt Date: 20180307
  Transmission Date: 20180509
  Serious: Yes (Other)
  Sender: FDA-Public Use
  Company Number: IT-JNJFOC-20180238797

PATIENT
  Age: 49 Year
  Sex: Male

DRUGS (2)
  1. IBUPROFEN. [Suspect]
     Active Substance: IBUPROFEN
     Route: 048
  2. IBUPROFEN. [Suspect]
     Active Substance: IBUPROFEN
     Indication: PYREXIA
     Dosage: IN TOTAL
     Route: 048
     Dates: start: 20180216, end: 20180216

REACTIONS (3)
  - Paraesthesia oral [Recovering/Resolving]
  - Dermatitis bullous [Recovering/Resolving]
  - Oedema peripheral [Recovering/Resolving]
